FAERS Safety Report 14782203 (Version 3)
Quarter: 2018Q3

REPORT INFORMATION
  Report Type: Spontaneous
  Country: US (occurrence: US)
  Receive Date: 20180420
  Receipt Date: 20180910
  Transmission Date: 20181010
  Serious: Yes (Hospitalization, Other)
  Sender: FDA-Public Use
  Company Number: US-009507513-1804USA006494

PATIENT
  Sex: Male
  Weight: 79.37 kg

DRUGS (10)
  1. PRINIVIL [Suspect]
     Active Substance: LISINOPRIL
     Route: 048
  2. MVI (ASCORBIC ACID (+) ERGOCALCIFEROL (+) VITAMIN A PALMITATE (+) VITA [Concomitant]
  3. PEPCID [Concomitant]
     Active Substance: FAMOTIDINE
  4. COLACE [Concomitant]
     Active Substance: DOCUSATE SODIUM
  5. CARVEDILOL. [Concomitant]
     Active Substance: CARVEDILOL
  6. AMLODIPINE [Concomitant]
     Active Substance: AMLODIPINE BESYLATE
  7. SUTENT [Suspect]
     Active Substance: SUNITINIB MALATE
     Dosage: 28 DAYS ON/14 DAYS OFF
     Dates: start: 20171205, end: 20180814
  8. POTASSIUM ACETATE. [Concomitant]
     Active Substance: POTASSIUM ACETATE
  9. PHENERGAN [Concomitant]
     Active Substance: PROMETHAZINE HYDROCHLORIDE
  10. LACTULOSE. [Concomitant]
     Active Substance: LACTULOSE
     Dosage: UNK, PRN

REACTIONS (11)
  - Vomiting [Unknown]
  - Blood pressure fluctuation [Recovering/Resolving]
  - Yellow skin [Unknown]
  - Decreased appetite [Unknown]
  - Flushing [Unknown]
  - Angioedema [Unknown]
  - Blood pressure increased [Recovering/Resolving]
  - Blood potassium decreased [Unknown]
  - Stomatitis [Unknown]
  - Fatigue [Unknown]
  - Gastrointestinal stromal tumour [Unknown]

NARRATIVE: CASE EVENT DATE: 2018
